FAERS Safety Report 4624314-5 (Version None)
Quarter: 2005Q1

REPORT INFORMATION
  Report Type: 
  Country: None (occurrence: None)
  Receive Date: 20050331
  Receipt Date: 20050126
  Transmission Date: 20050727
  Serious: Yes (Death)
  Sender: FDA-Public Use
  Company Number: IT-ABBOTT-05P-083-0288377-00

PATIENT
  Sex: Female

DRUGS (4)
  1. SEVORANE LIQUID FOR INHALATION [Suspect]
     Indication: INDUCTION OF ANAESTHESIA
     Route: 055
     Dates: start: 20050119, end: 20050119
  2. OXYGEN [Concomitant]
     Indication: INDUCTION OF ANAESTHESIA
     Dates: start: 20050119, end: 20050119
  3. OXYGEN [Concomitant]
  4. AIR [Concomitant]
     Indication: INDUCTION OF ANAESTHESIA
     Dates: start: 20050119, end: 20050119

REACTIONS (5)
  - ARRHYTHMIA [None]
  - CARDIAC ARREST [None]
  - CYANOSIS [None]
  - HYPOKINESIA [None]
  - OXYGEN SATURATION DECREASED [None]
